FAERS Safety Report 18884712 (Version 1)
Quarter: 2021Q1

REPORT INFORMATION
  Report Type: Report from Study
  Country: DE (occurrence: DE)
  Receive Date: 20210212
  Receipt Date: 20210212
  Transmission Date: 20210420
  Serious: Yes (Congenital Anomaly, Other)
  Sender: FDA-Public Use
  Company Number: DE-BAYER-2021-059419

PATIENT

DRUGS (1)
  1. NAPROXEN SODIUM. [Suspect]
     Active Substance: NAPROXEN SODIUM

REACTIONS (4)
  - Heart disease congenital [None]
  - Oesophageal atresia [None]
  - Tracheo-oesophageal fistula [None]
  - Choanal stenosis [None]
